FAERS Safety Report 23072730 (Version 2)
Quarter: 2023Q4

REPORT INFORMATION
  Report Type: Spontaneous
  Country: US (occurrence: US)
  Receive Date: 20231017
  Receipt Date: 20231122
  Transmission Date: 20240110
  Serious: No
  Sender: FDA-Public Use
  Company Number: US-FDC-2023USSPO00698

PATIENT
  Age: 58 Year
  Sex: Female
  Weight: 130 kg

DRUGS (3)
  1. TIMOLOL MALEATE [Suspect]
     Active Substance: TIMOLOL MALEATE
     Indication: Intraocular pressure test
     Route: 047
     Dates: start: 20230826, end: 20230830
  2. SIMBRINZA [Concomitant]
     Active Substance: BRIMONIDINE TARTRATE\BRINZOLAMIDE
     Route: 065
  3. LUMIGAN [Concomitant]
     Active Substance: BIMATOPROST
     Route: 065

REACTIONS (5)
  - Swelling [Not Recovered/Not Resolved]
  - Lymphadenopathy [Not Recovered/Not Resolved]
  - Ocular hyperaemia [Not Recovered/Not Resolved]
  - Eye infection [Not Recovered/Not Resolved]
  - Eye irritation [Not Recovered/Not Resolved]

NARRATIVE: CASE EVENT DATE: 20230826
